FAERS Safety Report 7077886-8 (Version None)
Quarter: 2010Q4

REPORT INFORMATION
  Report Type: 
  Country: None (occurrence: None)
  Receive Date: 20101101
  Receipt Date: 20101021
  Transmission Date: 20110411
  Serious: Yes (Death, Other)
  Sender: FDA-Public Use
  Company Number: US-ELI_LILLY_AND_COMPANY-US201008008092

PATIENT
  Sex: Male
  Weight: 66.667 kg

DRUGS (11)
  1. ALIMTA [Suspect]
     Indication: LUNG NEOPLASM MALIGNANT
     Dosage: 940 MG, EVERY 21 DAYS
     Route: 065
     Dates: start: 20100507, end: 20100609
  2. CARBOPLATIN [Concomitant]
     Indication: LUNG NEOPLASM MALIGNANT
     Dosage: UNK, UNKNOWN
     Route: 065
  3. VITAMIN B-12 [Concomitant]
     Dosage: UNK, UNKNOWN
     Route: 065
  4. FOLIC ACID [Concomitant]
     Dosage: UNK, UNKNOWN
     Route: 065
  5. DEXAMETHASONE [Concomitant]
     Dosage: UNK, UNKNOWN
     Route: 065
  6. LORAZEPAM [Concomitant]
     Dosage: UNK, UNKNOWN
     Route: 065
  7. ZOFRAN [Concomitant]
     Dosage: UNK, UNKNOWN
     Route: 065
  8. COMPAZINE [Concomitant]
     Dosage: UNK, UNKNOWN
     Route: 065
  9. OMEPRAZOLE [Concomitant]
     Dosage: 40 MG, DAILY (1/D)
     Route: 048
     Dates: start: 20100401
  10. GLUCOPHAGE [Concomitant]
     Dosage: 500 MG, 2/D
     Route: 048
     Dates: start: 20100401
  11. NICOTINE [Concomitant]
     Dosage: 7 MG, DAILY (1/D)
     Route: 062
     Dates: start: 20100401

REACTIONS (1)
  - MALIGNANT NEOPLASM PROGRESSION [None]
